FAERS Safety Report 4331832-6 (Version None)
Quarter: 2004Q2

REPORT INFORMATION
  Report Type: 
  Country: None (occurrence: None)
  Receive Date: 20040405
  Receipt Date: 20031104
  Transmission Date: 20050107
  Serious: No
  Sender: FDA-Public Use
  Company Number: US-GLAXOSMITHKLINE-A0432895A

PATIENT
  Age: 61 Year
  Sex: Male

DRUGS (10)
  1. FLOVENT [Suspect]
     Indication: EMPHYSEMA
     Dosage: 880MCG TWICE PER DAY
     Route: 055
     Dates: start: 20030401
  2. FORADIL [Concomitant]
  3. ALBUTEROL [Concomitant]
  4. MULTI-VITAMIN [Concomitant]
  5. FOLIC ACID [Concomitant]
  6. THIAMINE [Concomitant]
  7. ASPIRIN [Concomitant]
  8. TERAZOSIN HCL [Concomitant]
  9. BACLOFEN [Concomitant]
  10. CHLORPHENIRAMINE MALEATE [Concomitant]

REACTIONS (4)
  - CHEST DISCOMFORT [None]
  - DRUG INEFFECTIVE [None]
  - DYSPNOEA [None]
  - PHARMACEUTICAL PRODUCT COMPLAINT [None]
